FAERS Safety Report 16157470 (Version 6)
Quarter: 2021Q2

REPORT INFORMATION
  Report Type: Spontaneous
  Country: US (occurrence: US)
  Receive Date: 20190404
  Receipt Date: 20210524
  Transmission Date: 20210716
  Serious: Yes (Hospitalization)
  Sender: FDA-Public Use
  Company Number: US-PFIZER INC-2019140093

PATIENT
  Age: 80 Year
  Sex: Female

DRUGS (1)
  1. XELJANZ XR [Suspect]
     Active Substance: TOFACITINIB CITRATE
     Dosage: 11 MG, DAILY

REACTIONS (8)
  - Back pain [Unknown]
  - Back disorder [Unknown]
  - Hip fracture [Unknown]
  - Herpes zoster [Unknown]
  - Condition aggravated [Unknown]
  - Pain in extremity [Unknown]
  - Hypoacusis [Unknown]
  - COVID-19 [Unknown]
